FAERS Safety Report 9707204 (Version 1)
Quarter: 2013Q4

REPORT INFORMATION
  Report Type: Spontaneous
  Country: US (occurrence: US)
  Receive Date: 20131125
  Receipt Date: 20131125
  Transmission Date: 20140711
  Serious: Yes (Other)
  Sender: FDA-Public Use
  Company Number: US-JNJFOC-20131110894

PATIENT
  Age: 40 Year
  Sex: Female
  Weight: 63.5 kg

DRUGS (6)
  1. TOPAMAX [Suspect]
     Indication: GRAND MAL CONVULSION
     Route: 048
  2. TOPAMAX [Suspect]
     Indication: GRAND MAL CONVULSION
     Route: 048
  3. NEURONTIN [Suspect]
     Indication: NERVOUS SYSTEM DISORDER
     Route: 065
     Dates: start: 1993
  4. PROZAC [Concomitant]
     Indication: DEPRESSION
     Route: 065
  5. PROZAC [Concomitant]
     Indication: PANIC ATTACK
     Route: 065
  6. NAPROXEN [Concomitant]
     Indication: SPINAL DISORDER
     Route: 065

REACTIONS (3)
  - Brain oedema [Unknown]
  - Grand mal convulsion [Unknown]
  - Pain [Unknown]
